FAERS Safety Report 9539253 (Version 4)
Quarter: 2014Q2

REPORT INFORMATION
  Report Type: Spontaneous
  Country: US (occurrence: None)
  Receive Date: 20130917
  Receipt Date: 20140516
  Transmission Date: 20141212
  Serious: Yes (Hospitalization, Other)
  Sender: FDA-Public Use
  Company Number: ADR-2013-00827

PATIENT
  Age: 56 Year
  Sex: Male

DRUGS (1)
  1. LIORESAL [Suspect]
     Indication: MUSCLE SPASTICITY

REACTIONS (11)
  - Withdrawal syndrome [None]
  - Overdose [None]
  - Drug ineffective [None]
  - Underdose [None]
  - Chest discomfort [None]
  - Musculoskeletal stiffness [None]
  - No therapeutic response [None]
  - Paralysis [None]
  - Infection [None]
  - Incorrect route of drug administration [None]
  - Device failure [None]
